FAERS Safety Report 5731334-6 (Version None)
Quarter: 2008Q2

REPORT INFORMATION
  Report Type: 
  Country: None (occurrence: None)
  Receive Date: 20080506
  Receipt Date: 20080422
  Transmission Date: 20081010
  Serious: Yes (Hospitalization, Other)
  Sender: FDA-Public Use
  Company Number: 2008US001191

PATIENT
  Age: 52 Year
  Sex: Male

DRUGS (3)
  1. PROGRAF [Suspect]
     Indication: LIVER TRANSPLANT
     Dosage: 0.5 MG, UID/QD,
  2. PEGYLATED INTERFERON ALFA-2A (PEGINTERFERON ALFA-2A) [Concomitant]
  3. RIBAVIRIN [Concomitant]

REACTIONS (14)
  - BLOOD ALKALINE PHOSPHATASE INCREASED [None]
  - CHOLANGITIS [None]
  - CHOLANGITIS SCLEROSING [None]
  - CHRONIC HEPATITIS [None]
  - CRYPTOSPORIDIOSIS INFECTION [None]
  - DEHYDRATION [None]
  - ENTEROCOLITIS INFECTIOUS [None]
  - GAMMA-GLUTAMYLTRANSFERASE INCREASED [None]
  - HAEMOLYTIC URAEMIC SYNDROME [None]
  - HYPOTENSION [None]
  - LIVER TRANSPLANT REJECTION [None]
  - PANCYTOPENIA [None]
  - PRURITUS [None]
  - SEPSIS [None]
